FAERS Safety Report 8092363-3 (Version None)
Quarter: 2012Q1

REPORT INFORMATION
  Report Type: 
  Country: None (occurrence: None)
  Receive Date: 20120128
  Receipt Date: 20110825
  Transmission Date: 20120608
  Serious: No
  Sender: FDA-Public Use
  Company Number: US-ABBOTT-11P-163-0849177-00

PATIENT
  Sex: Female

DRUGS (11)
  1. HUMIRA [Suspect]
     Dates: start: 20110501
  2. VENTOLIN [Concomitant]
     Indication: PRODUCT USED FOR UNKNOWN INDICATION
     Dosage: 2-4 PUFFS EVERY 4 HRS AS NEEDED
  3. METHOTREXATE [Concomitant]
     Indication: RHEUMATOID ARTHRITIS
     Dosage: WEDNESDAY ONLY
     Dates: start: 20110701
  4. TYLENOL W/ CODEINE [Concomitant]
     Indication: PAIN
  5. FOLIC ACID [Concomitant]
     Indication: SUPPLEMENTATION THERAPY
  6. IRON [Concomitant]
     Indication: ANAEMIA
     Dosage: INFUSION EVERY 6 MONTHS
  7. CELEXA [Concomitant]
     Indication: DEPRESSION
  8. LYRICA [Concomitant]
     Indication: FIBROMYALGIA
  9. PREDNISONE TAB [Concomitant]
     Indication: RHEUMATOID ARTHRITIS
  10. HUMIRA [Suspect]
     Indication: RHEUMATOID ARTHRITIS
     Route: 058
     Dates: start: 20101101, end: 20110501
  11. VITAMIN B COMPLEX CAP [Concomitant]
     Indication: VITAMIN B COMPLEX DEFICIENCY
     Route: 050

REACTIONS (8)
  - FUNGAL INFECTION [None]
  - ARTHRALGIA [None]
  - PRURITUS [None]
  - INFECTION [None]
  - RASH PRURITIC [None]
  - MIDDLE INSOMNIA [None]
  - GENITAL RASH [None]
  - ARTHROPOD BITE [None]
